FAERS Safety Report 17689758 (Version 1)
Quarter: 2020Q2

REPORT INFORMATION
  Report Type: Spontaneous
  Country: AU (occurrence: AU)
  Receive Date: 20200421
  Receipt Date: 20200421
  Transmission Date: 20200714
  Serious: Yes (Other)
  Sender: FDA-Public Use
  Company Number: AU-IPSEN BIOPHARMACEUTICALS, INC.-2020-07339

PATIENT
  Age: 56 Year
  Sex: Female

DRUGS (13)
  1. PANTOPRAZOLE [Concomitant]
     Active Substance: PANTOPRAZOLE
  2. SOMATULINE AUTOGEL [Suspect]
     Active Substance: LANREOTIDE ACETATE
     Indication: PRODUCT USED FOR UNKNOWN INDICATION
     Dosage: DOSE, FREQUENCY NOT REPORTED
     Route: 065
  3. ALDACTONE [Concomitant]
     Active Substance: SPIRONOLACTONE
  4. ESTRIOL [Concomitant]
     Active Substance: ESTRIOL
  5. AROPAX [Concomitant]
     Active Substance: PAROXETINE HYDROCHLORIDE
  6. FENTANYL. [Suspect]
     Active Substance: FENTANYL
  7. PANADOL [Concomitant]
     Active Substance: ACETAMINOPHEN
  8. SEVREDOL [Concomitant]
     Active Substance: MORPHINE
  9. HYDROMORPHONE [Concomitant]
     Active Substance: HYDROMORPHONE
  10. ACTILAX [Concomitant]
     Active Substance: LACTULOSE
  11. XIFAXAN [Concomitant]
     Active Substance: RIFAXIMIN
  12. ONDANSETRON [Suspect]
     Active Substance: ONDANSETRON
  13. MOVICOL [Concomitant]
     Active Substance: POLYETHYLENE GLYCOL 3350\POTASSIUM CHLORIDE\SODIUM BICARBONATE\SODIUM CHLORIDE

REACTIONS (12)
  - Urinary tract infection [Unknown]
  - Feeling abnormal [Unknown]
  - Dizziness [Unknown]
  - Diarrhoea [Unknown]
  - Nausea [Unknown]
  - Pain [Unknown]
  - Constipation [Unknown]
  - Fear of injection [Unknown]
  - Fall [Unknown]
  - Vomiting [Unknown]
  - Product dose omission [Unknown]
  - Fractured sacrum [Unknown]
